FAERS Safety Report 10169115 (Version 1)
Quarter: 2014Q2

REPORT INFORMATION
  Report Type: Spontaneous
  Country: US (occurrence: None)
  Receive Date: 20140509
  Receipt Date: 20140509
  Transmission Date: 20141212
  Serious: Yes (Other)
  Sender: FDA-Public Use
  Company Number: A1072392A

PATIENT
  Age: 42 Year
  Sex: Female

DRUGS (1)
  1. BENZOYL PEROXIDE [Suspect]
     Route: 061

REACTIONS (1)
  - Cardiac flutter [None]
